FAERS Safety Report 26186514 (Version 1)
Quarter: 2025Q4

REPORT INFORMATION
  Report Type: Spontaneous
  Country: CN (occurrence: CN)
  Receive Date: 20251222
  Receipt Date: 20251222
  Transmission Date: 20260118
  Serious: Yes (Hospitalization)
  Sender: BAYER HEALTHCARE PHARMACEUTICALS INC.
  Company Number: CN-BAYER-2025A165591

PATIENT
  Age: 75 Year
  Sex: Male
  Weight: 60 kg

DRUGS (1)
  1. ULTRAVIST [Suspect]
     Active Substance: IOPROMIDE
     Indication: Computerised tomogram heart
     Dosage: 76.89 G, ONCE
     Route: 042
     Dates: start: 20251203, end: 20251203

REACTIONS (5)
  - Temperature intolerance [Recovering/Resolving]
  - Chills [Recovering/Resolving]
  - Tachypnoea [Recovering/Resolving]
  - Hypertension [Recovered/Resolved]
  - Oxygen saturation decreased [Recovering/Resolving]

NARRATIVE: CASE EVENT DATE: 20251203
